FAERS Safety Report 10549147 (Version 1)
Quarter: 2014Q4

REPORT INFORMATION
  Report Type: Spontaneous
  Country: US (occurrence: None)
  Receive Date: 20141016
  Receipt Date: 20141016
  Transmission Date: 20150529
  Serious: Yes (Hospitalization)
  Sender: FDA-Public Use
  Company Number: CABO-14004627

PATIENT
  Age: 65 Year
  Sex: Male
  Weight: 75.7 kg

DRUGS (7)
  1. LASIX [Concomitant]
     Active Substance: FUROSEMIDE
  2. LIPITOR(ATORVASTIN CALCIUM) [Concomitant]
  3. CLONIDINE. [Concomitant]
     Active Substance: CLONIDINE
  4. ATENOLOL. [Concomitant]
     Active Substance: ATENOLOL
  5. COMETRIQ [Suspect]
     Active Substance: CABOZANTINIB S-MALATE
     Indication: RENAL CANCER
     Route: 048
     Dates: start: 20140529, end: 20140602
  6. NEORAL(CICLOSPORIN) [Concomitant]
  7. RAPAMUNE(SIROLIMUS) [Concomitant]

REACTIONS (3)
  - Vomiting [None]
  - Off label use [None]
  - Diarrhoea [None]
